FAERS Safety Report 4738097-1 (Version None)
Quarter: 2005Q3

REPORT INFORMATION
  Report Type: 
  Country: None (occurrence: None)
  Receive Date: 20050809
  Receipt Date: 20050803
  Transmission Date: 20060218
  Serious: Yes (Other)
  Sender: FDA-Public Use
  Company Number: PHBS2005JP11253

PATIENT
  Age: 54 Year
  Sex: Female

DRUGS (4)
  1. SIMULECT [Suspect]
     Indication: LIVER TRANSPLANT
     Route: 065
  2. CYCLOSPORINE [Suspect]
     Indication: LIVER TRANSPLANT
     Route: 065
  3. TACROLIMUS [Concomitant]
     Route: 065
  4. METHYLPREDNISOLONE 16MG TAB [Concomitant]

REACTIONS (2)
  - HEPATIC CONGESTION [None]
  - LIVER TRANSPLANT REJECTION [None]
